FAERS Safety Report 5718321-9 (Version None)
Quarter: 2008Q2

REPORT INFORMATION
  Report Type: 
  Country: None (occurrence: None)
  Receive Date: 20080425
  Receipt Date: 20080424
  Transmission Date: 20081010
  Serious: Yes (Death)
  Sender: FDA-Public Use
  Company Number: IN-BRISTOL-MYERS SQUIBB COMPANY-14163422

PATIENT
  Age: 29 Year
  Sex: Male

DRUGS (1)
  1. BARACLUDE [Suspect]
     Route: 048
     Dates: start: 20080209, end: 20080212

REACTIONS (2)
  - JAUNDICE [None]
  - RENAL FAILURE [None]
